FAERS Safety Report 24209304 (Version 2)
Quarter: 2024Q3

REPORT INFORMATION
  Report Type: Report from Study
  Country: US (occurrence: US)
  Receive Date: 20240814
  Receipt Date: 20240913
  Transmission Date: 20241017
  Serious: Yes (Other)
  Sender: AMGEN
  Company Number: US-AMGEN-USASL2024160237

PATIENT
  Age: 37 Year
  Sex: Female

DRUGS (3)
  1. TEPEZZA [Suspect]
     Active Substance: TEPROTUMUMAB-TRBW
     Indication: Product used for unknown indication
     Dosage: 20 MILLIGRAM/KILOGRAM
     Route: 042
     Dates: start: 20240408
  2. TEPEZZA [Suspect]
     Active Substance: TEPROTUMUMAB-TRBW
     Dosage: 20 MILLIGRAM/KILOGRAM, FIFTH INFUSION
     Route: 042
     Dates: start: 2024
  3. TEPEZZA [Suspect]
     Active Substance: TEPROTUMUMAB-TRBW
     Dosage: 20 MILLIGRAM/KILOGRAM (SIXTH INFUSION)
     Route: 042
     Dates: start: 2024

REACTIONS (9)
  - Deafness [Unknown]
  - Diabetes mellitus [Unknown]
  - Muscle spasms [Unknown]
  - Abdominal pain upper [Unknown]
  - Amenorrhoea [Unknown]
  - Dysgeusia [Unknown]
  - Abdominal pain [Unknown]
  - Tinnitus [Unknown]
  - Tooth disorder [Unknown]

NARRATIVE: CASE EVENT DATE: 20240101
